FAERS Safety Report 23782006 (Version 3)
Quarter: 2024Q2

REPORT INFORMATION
  Report Type: Spontaneous
  Country: UY (occurrence: UY)
  Receive Date: 20240425
  Receipt Date: 20240621
  Transmission Date: 20240716
  Serious: Yes (Other)
  Sender: FDA-Public Use
  Company Number: UY-ROCHE-3546413

PATIENT
  Age: 57 Year
  Sex: Female

DRUGS (5)
  1. OCREVUS [Suspect]
     Active Substance: OCRELIZUMAB
     Indication: Secondary progressive multiple sclerosis
     Dosage: SUBSEQUENT DOSES ON 23/FEB/2024
     Route: 065
     Dates: start: 202308
  2. DULOXETINE [Concomitant]
     Active Substance: DULOXETINE
  3. BACLOFEN [Concomitant]
     Active Substance: BACLOFEN
  4. PREGABALIN [Concomitant]
     Active Substance: PREGABALIN
  5. BETHANECHOL [Concomitant]
     Active Substance: BETHANECHOL

REACTIONS (1)
  - Paraparesis [Recovering/Resolving]

NARRATIVE: CASE EVENT DATE: 20231226
